FAERS Safety Report 7401696-2 (Version None)
Quarter: 2011Q2

REPORT INFORMATION
  Report Type: 
  Country: None (occurrence: None)
  Receive Date: 20110408
  Receipt Date: 20110329
  Transmission Date: 20111010
  Serious: Yes (Other)
  Sender: FDA-Public Use
  Company Number: US-AMGEN-USASP2011011941

PATIENT
  Age: 42 Year
  Sex: Female

DRUGS (1)
  1. ENBREL [Suspect]
     Indication: PSORIATIC ARTHROPATHY
     Dosage: 50 MG, QWK
     Dates: start: 20110210

REACTIONS (14)
  - OROPHARYNGEAL PAIN [None]
  - PAIN [None]
  - INJECTION SITE PRURITUS [None]
  - PYREXIA [None]
  - INJECTION SITE ERYTHEMA [None]
  - INJECTION SITE SWELLING [None]
  - NASAL CONGESTION [None]
  - ROAD TRAFFIC ACCIDENT [None]
  - SINUS HEADACHE [None]
  - SNEEZING [None]
  - HEADACHE [None]
  - RHINORRHOEA [None]
  - MUSCULOSKELETAL STIFFNESS [None]
  - SINUSITIS [None]
